FAERS Safety Report 16139999 (Version 1)
Quarter: 2019Q1

REPORT INFORMATION
  Report Type: Spontaneous
  Country: US (occurrence: US)
  Receive Date: 20190331
  Receipt Date: 20190331
  Transmission Date: 20190418
  Serious: Yes (Other)
  Sender: FDA-Public Use
  Company Number: US-AMGEN-USASP2019048072

PATIENT

DRUGS (1)
  1. PROLIA [Suspect]
     Active Substance: DENOSUMAB
     Indication: OSTEOPOROSIS
     Dosage: UNK
     Route: 065

REACTIONS (11)
  - Cough [Unknown]
  - Skin irritation [Unknown]
  - Rhinorrhoea [Unknown]
  - Ill-defined disorder [Unknown]
  - Lung infection [Unknown]
  - Lacrimation increased [Unknown]
  - Chest pain [Unknown]
  - Muscle spasms [Unknown]
  - Deafness [Unknown]
  - Insomnia [Unknown]
  - Fatigue [Unknown]

NARRATIVE: CASE EVENT DATE: 2018
